FAERS Safety Report 10190034 (Version 1)
Quarter: 2014Q2

REPORT INFORMATION
  Report Type: Spontaneous
  Country: CA (occurrence: CA)
  Receive Date: 20140522
  Receipt Date: 20140522
  Transmission Date: 20141212
  Serious: Yes (Other)
  Sender: FDA-Public Use
  Company Number: CA-AMGEN-CANSP2014036020

PATIENT
  Age: 64 Year
  Sex: Female

DRUGS (3)
  1. PROLIA [Suspect]
     Indication: OSTEOPOROSIS POSTMENOPAUSAL
     Dosage: 60 MG, Q6MO
     Route: 058
     Dates: start: 20121001
  2. VITAMIN D                          /00107901/ [Concomitant]
     Indication: VITAMIN D INCREASED
     Dosage: 1000 IU, UNK
  3. CALCIUM [Concomitant]
     Dosage: UNK

REACTIONS (16)
  - Coeliac disease [Unknown]
  - Otitis media [Unknown]
  - Vitamin D increased [Unknown]
  - Malaise [Unknown]
  - Sinus disorder [Not Recovered/Not Resolved]
  - Dysgeusia [Recovered/Resolved]
  - Discomfort [Recovered/Resolved]
  - Productive cough [Not Recovered/Not Resolved]
  - Muscle spasms [Unknown]
  - Adverse event [Unknown]
  - Gastrooesophageal reflux disease [Unknown]
  - Flatulence [Recovered/Resolved]
  - Fatigue [Unknown]
  - Pain in extremity [Unknown]
  - Sleep disorder due to a general medical condition [Unknown]
  - Mobility decreased [Unknown]
